FAERS Safety Report 15616937 (Version 10)
Quarter: 2019Q4

REPORT INFORMATION
  Report Type: Report from Study
  Country: US (occurrence: US)
  Receive Date: 20181114
  Receipt Date: 20191030
  Transmission Date: 20200122
  Serious: Yes (Death, Life-Threatening, Hospitalization)
  Sender: FDA-Public Use
  Company Number: US-CELGENEUS-USA-20180909031

PATIENT
  Age: 77 Year
  Sex: Male

DRUGS (50)
  1. VIDAZA [Suspect]
     Active Substance: AZACITIDINE
     Indication: MYELODYSPLASTIC SYNDROME
     Dosage: 75 MILLIGRAM/SQ. METER
     Route: 041
     Dates: start: 20180913, end: 20180919
  2. ADENOSINE. [Concomitant]
     Active Substance: ADENOSINE
     Indication: SUPRAVENTRICULAR TACHYCARDIA
     Dosage: 6 MILLIGRAM
     Route: 041
     Dates: start: 20180922, end: 20180922
  3. IPRATROPIUM/ALBUTEROL [Concomitant]
     Active Substance: ALBUTEROL\IPRATROPIUM
     Indication: DYSPNOEA
     Dosage: 3 ML
     Route: 055
     Dates: start: 20180917, end: 20181012
  4. IPRATROPIUM/ALBUTEROL [Concomitant]
     Active Substance: ALBUTEROL\IPRATROPIUM
     Indication: HYPOXIA
     Dosage: 16.5 MILLIGRAM
     Route: 048
     Dates: start: 20180919, end: 20180922
  5. LEVOTHYROXINE. [Concomitant]
     Active Substance: LEVOTHYROXINE
     Indication: HYPOTHYROIDISM
     Dosage: 25 MILLIGRAM
     Route: 048
     Dates: start: 20180828, end: 20180919
  6. CALCIUM GLUCONATE. [Concomitant]
     Active Substance: CALCIUM GLUCONATE
     Dosage: 1000 MILLIGRAM
     Route: 041
     Dates: start: 20180927, end: 20180927
  7. IVERMECTIN. [Concomitant]
     Active Substance: IVERMECTIN
     Indication: PRODUCT USED FOR UNKNOWN INDICATION
     Dosage: 16.5 MILLIGRAM
     Route: 048
     Dates: start: 20180907, end: 20180908
  8. VALACYCLOVIR [Concomitant]
     Active Substance: VALACYCLOVIR HYDROCHLORIDE
     Indication: ANTIVIRAL PROPHYLAXIS
  9. LINEZOLID. [Concomitant]
     Active Substance: LINEZOLID
     Indication: PROPHYLAXIS
     Dosage: 1200 MILLIGRAM
     Route: 041
     Dates: start: 20180827, end: 20180903
  10. ALBUMIN HUMAN [Concomitant]
     Active Substance: ALBUMIN HUMAN
     Dosage: 25 GRAM
     Route: 041
     Dates: start: 20181001, end: 20181007
  11. ALLOPURINOL. [Concomitant]
     Active Substance: ALLOPURINOL
     Indication: PROPHYLAXIS
     Dosage: 300 MILLIGRAM
     Route: 048
     Dates: start: 20180918, end: 20180918
  12. AMLODIPINE [Concomitant]
     Active Substance: AMLODIPINE BESYLATE
     Indication: HYPERTENSION
     Dosage: 10 MILLIGRAM
     Route: 048
     Dates: start: 20180113
  13. HYDROCHLOROTHIAZIDE. [Concomitant]
     Active Substance: HYDROCHLOROTHIAZIDE
     Indication: HYPERTENSION
     Dosage: 12.5 MILLIGRAM
     Route: 048
     Dates: start: 20180828
  14. CEFEPIME [Concomitant]
     Active Substance: CEFEPIME HYDROCHLORIDE
     Indication: CELLULITIS
     Dosage: 6000 MILLIGRAM
     Route: 041
     Dates: start: 20180828, end: 20180905
  15. AMIODARONE [Concomitant]
     Active Substance: AMIODARONE
     Indication: VENTRICULAR TACHYCARDIA
     Dosage: 450 MILLIGRAM
     Route: 041
     Dates: start: 20180921, end: 20180922
  16. CISATRACURIUM. [Concomitant]
     Active Substance: CISATRACURIUM
     Indication: SUPPORTIVE CARE
  17. CALCIUM GLUCONATE. [Concomitant]
     Active Substance: CALCIUM GLUCONATE
     Indication: HYPOCALCAEMIA
     Dosage: 2000 MILLIGRAM
     Route: 041
     Dates: start: 20180929, end: 20180929
  18. CALCIUM GLUCONATE. [Concomitant]
     Active Substance: CALCIUM GLUCONATE
     Dosage: 1000 MILLIGRAM
     Route: 041
     Dates: start: 20181007, end: 20181007
  19. LEVOFLOXACIN. [Concomitant]
     Active Substance: LEVOFLOXACIN
     Indication: ANTIBIOTIC PROPHYLAXIS
     Dosage: 500 MILLIGRAM
     Route: 048
     Dates: start: 20180915, end: 20180915
  20. LEVOFLOXACIN. [Concomitant]
     Active Substance: LEVOFLOXACIN
     Dosage: 750 MILLIGRAM
     Route: 041
     Dates: start: 20180924, end: 20180924
  21. ALLOPURINOL. [Concomitant]
     Active Substance: ALLOPURINOL
     Indication: PROPHYLAXIS
     Dosage: 100 MILLIGRAM
     Route: 041
     Dates: start: 20180920, end: 20180924
  22. LINEZOLID. [Concomitant]
     Active Substance: LINEZOLID
     Indication: CELLULITIS
     Dosage: 1200 MILLIGRAM
     Route: 041
     Dates: start: 20180907, end: 20180911
  23. ACYCLOVIR. [Concomitant]
     Active Substance: ACYCLOVIR
     Indication: ANTIVIRAL PROPHYLAXIS
     Dosage: 5 MILLIGRAM/KILOGRAM
     Route: 041
     Dates: start: 20180920, end: 20181012
  24. MAGNESIUM SULFATE. [Concomitant]
     Active Substance: MAGNESIUM SULFATE
     Indication: HYPOMAGNESAEMIA
     Dosage: 4 GRAM
     Route: 041
     Dates: start: 20181010, end: 20181010
  25. MAGNESIUM SULFATE. [Concomitant]
     Active Substance: MAGNESIUM SULFATE
     Indication: PROPHYLAXIS
  26. CISATRACURIUM. [Concomitant]
     Active Substance: CISATRACURIUM
     Indication: SEDATION
     Dosage: 8390 GRAM
     Route: 041
     Dates: start: 20181011, end: 20181011
  27. LEVOCARNITINE. [Concomitant]
     Active Substance: LEVOCARNITINE
     Dosage: 4320 MILLIGRAM
     Route: 041
     Dates: start: 20180926, end: 20180926
  28. LORAZEPAM. [Concomitant]
     Active Substance: LORAZEPAM
     Indication: AGITATION
     Dosage: 4320 MILLIGRAM
     Route: 041
     Dates: start: 20181006, end: 20181006
  29. VENETOCLAX. [Concomitant]
     Active Substance: VENETOCLAX
     Indication: MYELODYSPLASTIC SYNDROME
     Dosage: 400 MILLIGRAM
     Route: 048
     Dates: start: 20180913, end: 20180918
  30. SODIUM CHLORIDE. [Concomitant]
     Active Substance: SODIUM CHLORIDE
     Indication: PROPHYLAXIS
     Dosage: 75 ML/HR
     Route: 041
     Dates: start: 20180913, end: 20180917
  31. INSULIN LISPRO [Concomitant]
     Active Substance: INSULIN LISPRO
     Dosage: 15 IU (INTERNATIONAL UNIT)
     Route: 058
     Dates: start: 20180829, end: 20180919
  32. ACETYLCYSTEINE. [Concomitant]
     Active Substance: ACETYLCYSTEINE
     Indication: ASTHMA
     Dosage: 800 MILLIGRAM
     Route: 041
     Dates: start: 20180929, end: 20181007
  33. AMIODARONE [Concomitant]
     Active Substance: AMIODARONE
     Indication: ATRIAL FIBRILLATION
  34. SYSTANE (HYPROMELLOSE 2910 (4000 MPA.S)) [Concomitant]
     Active Substance: HYPROMELLOSE 2910 (4000 MPA.S)
     Indication: DRY EYE
     Dosage: 2 DROPS
     Route: 047
     Dates: start: 20181001, end: 20181012
  35. ALLOPURINOL. [Concomitant]
     Active Substance: ALLOPURINOL
     Indication: NEPHROLITHIASIS
     Dosage: 100 MILLIGRAM
     Route: 048
     Dates: start: 20180920, end: 20180924
  36. VALACYCLOVIR [Concomitant]
     Active Substance: VALACYCLOVIR HYDROCHLORIDE
     Indication: PROPHYLAXIS
     Dosage: 500 MILLIGRAM
     Route: 048
     Dates: start: 20180828, end: 20180918
  37. AZTREONAM. [Concomitant]
     Active Substance: AZTREONAM
     Indication: CELLULITIS
     Dosage: 25 MILLIGRAM
     Route: 041
     Dates: start: 20180827, end: 20180828
  38. CALCIUM CARBONATE. [Concomitant]
     Active Substance: CALCIUM CARBONATE
     Indication: HYPOCALCAEMIA
     Dosage: 2500 MILLIGRAM
     Route: 065
     Dates: start: 20180929, end: 20180929
  39. AMLODIPINE [Concomitant]
     Active Substance: AMLODIPINE BESYLATE
     Indication: ANGINA PECTORIS
  40. DOXAZOSIN [Concomitant]
     Active Substance: DOXAZOSIN MESYLATE
     Indication: HYPERTENSION
     Dosage: 4 MILLIGRAM
     Route: 048
     Dates: start: 20180828, end: 20180919
  41. LEVOTHYROXINE. [Concomitant]
     Active Substance: LEVOTHYROXINE
     Dosage: 20 MILLIGRAM
     Route: 041
     Dates: start: 20180920
  42. INSULIN LISPRO [Concomitant]
     Active Substance: INSULIN LISPRO
     Indication: DIABETES MELLITUS
     Dosage: 2-10 UNITS
     Route: 058
     Dates: start: 20180828, end: 20180919
  43. AMINOCAPROIC ACID. [Concomitant]
     Active Substance: AMINOCAPROIC ACID
     Indication: DIFFUSE ALVEOLAR DAMAGE
     Dosage: 5 GRAM
     Route: 041
     Dates: start: 20181011, end: 20181011
  44. ALBUMIN HUMAN [Concomitant]
     Active Substance: ALBUMIN HUMAN
     Indication: HYPOALBUMINAEMIA
     Dosage: 12.5 GRAM
     Route: 041
     Dates: start: 20180918, end: 20181008
  45. SODIUM BICARBONATE. [Concomitant]
     Active Substance: SODIUM BICARBONATE
     Indication: PRODUCT USED FOR UNKNOWN INDICATION
     Dosage: 20 ML
     Route: 065
     Dates: start: 20180922, end: 20180923
  46. CALCIUM CHLORIDE. [Concomitant]
     Active Substance: CALCIUM CHLORIDE
     Indication: HYPOCALCAEMIA
     Dosage: 1000 MILLIGRAM
     Route: 041
     Dates: start: 20180929, end: 20180929
  47. GABAPENTIN. [Concomitant]
     Active Substance: GABAPENTIN
     Indication: DIABETIC NEUROPATHY
     Dosage: 300 MILLIGRAM
     Route: 048
     Dates: start: 20180113
  48. LEVOCARNITINE. [Concomitant]
     Active Substance: LEVOCARNITINE
     Indication: ACUTE KIDNEY INJURY
     Dosage: 4320 MILLIGRAM
     Route: 041
     Dates: start: 20180826, end: 20181012
  49. LEVOFLOXACIN. [Concomitant]
     Active Substance: LEVOFLOXACIN
     Dosage: 250 MILLIGRAM
     Route: 048
     Dates: start: 20180916, end: 20180916
  50. IVERMECTIN. [Concomitant]
     Active Substance: IVERMECTIN
     Dosage: 16.5 MILLIGRAM
     Route: 048
     Dates: start: 20180919, end: 20180922

REACTIONS (2)
  - Candida pneumonia [Recovered/Resolved]
  - Candida pneumonia [Fatal]

NARRATIVE: CASE EVENT DATE: 20180919
